FAERS Safety Report 4475575-7 (Version None)
Quarter: 2004Q4

REPORT INFORMATION
  Report Type: 
  Country: None (occurrence: None)
  Receive Date: 20041015
  Receipt Date: 20041008
  Transmission Date: 20050328
  Serious: Yes (Life-Threatening)
  Sender: FDA-Public Use
  Company Number: US-MERCK-0410USA01440

PATIENT
  Age: 45 Year
  Sex: Female

DRUGS (3)
  1. FLEXERIL [Concomitant]
     Route: 065
  2. VIOXX [Suspect]
     Indication: NECK PAIN
     Route: 048
     Dates: start: 20020501, end: 20040401
  3. ZOLOFT [Concomitant]
     Route: 065

REACTIONS (1)
  - HEART RATE INCREASED [None]
